FAERS Safety Report 9549187 (Version 1)
Quarter: 2013Q3

REPORT INFORMATION
  Report Type: Spontaneous
  Country: US (occurrence: None)
  Receive Date: 20130923
  Receipt Date: 20130923
  Transmission Date: 20140515
  Serious: Yes (Disabling)
  Sender: FDA-Public Use
  Company Number: None

PATIENT
  Age: 61 Year
  Sex: Female
  Weight: 81.65 kg

DRUGS (2)
  1. NAPROXEN [Suspect]
     Indication: EAR INFECTION
  2. LISINOPRIL [Suspect]
     Indication: HYPERTENSION

REACTIONS (4)
  - Pain [None]
  - Neoplasm recurrence [None]
  - Ear neoplasm malignant [None]
  - Delusion [None]
